FAERS Safety Report 6407912-8 (Version None)
Quarter: 2009Q4

REPORT INFORMATION
  Report Type: 
  Country: None (occurrence: None)
  Receive Date: 20091016
  Receipt Date: 20091002
  Transmission Date: 20100525
  Serious: Yes (Death)
  Sender: FDA-Public Use
  Company Number: POMP-1000722

PATIENT
  Age: 53 Year
  Sex: Male
  Weight: 101 kg

DRUGS (6)
  1. MYOZYME [Suspect]
     Indication: GLYCOGEN STORAGE DISEASE TYPE II
     Dates: start: 20071129
  2. MEDIATOR (BENFLUOREX HYDROCHLORIDE) [Concomitant]
  3. CORDARONE [Concomitant]
  4. BUMETANIDE [Concomitant]
  5. PREVISCAN (PENTOXIFYLLINE) [Concomitant]
  6. NOVONORM (REPAGLINIDE) [Concomitant]

REACTIONS (3)
  - DISEASE PROGRESSION [None]
  - DRUG INEFFECTIVE [None]
  - RESPIRATORY FAILURE [None]
